FAERS Safety Report 20938513 (Version 1)
Quarter: 2022Q2

REPORT INFORMATION
  Report Type: Spontaneous
  Country: US (occurrence: US)
  Receive Date: 20220609
  Receipt Date: 20220609
  Transmission Date: 20220720
  Serious: No
  Sender: FDA-Public Use
  Company Number: US-BAYER-2022A079775

PATIENT
  Age: 61 Year
  Sex: Male

DRUGS (1)
  1. SORAFENIB [Suspect]
     Active Substance: SORAFENIB
     Indication: Chronic myeloid leukaemia
     Dosage: UNK

REACTIONS (5)
  - Oedema peripheral [None]
  - Hypertension [None]
  - Diarrhoea [None]
  - Off label use [None]
  - Drug effective for unapproved indication [None]
